FAERS Safety Report 6341946-7 (Version None)
Quarter: 2009Q3

REPORT INFORMATION
  Report Type: 
  Country: None (occurrence: None)
  Receive Date: 20090904
  Receipt Date: 20090825
  Transmission Date: 20100115
  Serious: Yes (Other)
  Sender: FDA-Public Use
  Company Number: CA-AMGEN-QUU361769

PATIENT
  Age: 33 Year
  Sex: Female
  Weight: 59.6 kg

DRUGS (4)
  1. NEULASTA [Suspect]
     Indication: CHEMOTHERAPY
     Route: 058
     Dates: start: 20090801
  2. FLUOROURACIL [Concomitant]
     Dates: start: 20090731
  3. EPIRUBICIN [Concomitant]
     Dates: start: 20090731
  4. CYCLOPHOSPHAMIDE [Concomitant]
     Dates: start: 20090731

REACTIONS (1)
  - WHITE BLOOD CELL COUNT DECREASED [None]
